FAERS Safety Report 4864137-5 (Version None)
Quarter: 2005Q4

REPORT INFORMATION
  Report Type: 
  Country: None (occurrence: None)
  Receive Date: 20051222
  Receipt Date: 20051215
  Transmission Date: 20060501
  Serious: Yes (Other)
  Sender: FDA-Public Use
  Company Number: GB-GLAXOSMITHKLINE-B0403966A

PATIENT
  Age: 58 Year
  Sex: Female
  Weight: 70 kg

DRUGS (2)
  1. ZYBAN [Suspect]
     Indication: EX-SMOKER
     Dosage: 150MG UNKNOWN
     Route: 048
     Dates: start: 20051019, end: 20051127
  2. SIMVASTATIN [Concomitant]
     Indication: BLOOD CHOLESTEROL INCREASED
     Dosage: 10MG PER DAY
     Route: 048
     Dates: start: 20051017

REACTIONS (3)
  - ALOPECIA [None]
  - DEPRESSION [None]
  - PHARYNGOLARYNGEAL PAIN [None]
